FAERS Safety Report 10417630 (Version 1)
Quarter: 2014Q2

REPORT INFORMATION
  Report Type: Spontaneous
  Country: US (occurrence: None)
  Receive Date: 20140609
  Receipt Date: 20140609
  Transmission Date: 20141212
  Serious: No
  Sender: FDA-Public Use
  Company Number: 2014TUS000528

PATIENT
  Age: 34 Year
  Sex: Female

DRUGS (1)
  1. BRINTELLIX [Suspect]
     Dosage: UNK
     Dates: start: 20140112, end: 20140119

REACTIONS (3)
  - Rash [None]
  - Swelling [None]
  - Pruritus [None]
